FAERS Safety Report 18455717 (Version 2)
Quarter: 2021Q3

REPORT INFORMATION
  Report Type: Other
  Country: US (occurrence: US)
  Receive Date: 20201103
  Receipt Date: 20210817
  Transmission Date: 20211014
  Serious: Yes (Other)
  Sender: FDA-Public Use
  Company Number: US-ROCHE-2693019

PATIENT
  Sex: Male

DRUGS (5)
  1. ACETAMINOPHEN. [Concomitant]
     Active Substance: ACETAMINOPHEN
  2. PREDNISONE. [Concomitant]
     Active Substance: PREDNISONE
     Route: 048
  3. MESTINON [Concomitant]
     Active Substance: PYRIDOSTIGMINE BROMIDE
     Route: 048
  4. CELLCEPT [Suspect]
     Active Substance: MYCOPHENOLATE MOFETIL\MYCOPHENOLATE MOFETIL HYDROCHLORIDE
     Indication: MYASTHENIA GRAVIS
     Dosage: 3 TABLETS BID
     Route: 065
  5. OXYCODONE [Concomitant]
     Active Substance: OXYCODONE

REACTIONS (7)
  - Diarrhoea [Unknown]
  - Gastrointestinal sounds abnormal [Unknown]
  - Abdominal pain [Unknown]
  - Blindness [Unknown]
  - Asthenia [Unknown]
  - Disability [Unknown]
  - Off label use [Unknown]
